FAERS Safety Report 9552834 (Version 1)
Quarter: 2013Q3

REPORT INFORMATION
  Report Type: Spontaneous
  Country: US (occurrence: None)
  Receive Date: 20130724
  Receipt Date: 20130724
  Transmission Date: 20140515
  Serious: Yes (Other)
  Sender: FDA-Public Use
  Company Number: PHEH2012US017115

PATIENT
  Sex: Female

DRUGS (1)
  1. RECLAST [Suspect]
     Dosage: UNKNOWN, INTRAVENOUS
     Route: 042

REACTIONS (4)
  - Arthritis [None]
  - Pain [None]
  - Asthenia [None]
  - Infusion site extravasation [None]
